FAERS Safety Report 16921815 (Version 1)
Quarter: 2019Q4

REPORT INFORMATION
  Report Type: Spontaneous
  Country: JP (occurrence: JP)
  Receive Date: 20191015
  Receipt Date: 20191015
  Transmission Date: 20200122
  Serious: Yes (Other)
  Sender: FDA-Public Use
  Company Number: NVSC2019JP001355

PATIENT
  Age: 69 Year
  Sex: Male

DRUGS (1)
  1. VORICONAZOLE. [Suspect]
     Active Substance: VORICONAZOLE
     Indication: ASPERGILLUS INFECTION
     Dosage: 400 MG, QD
     Route: 065

REACTIONS (4)
  - Erythema [Recovered/Resolved]
  - Photosensitivity reaction [Recovered/Resolved]
  - Actinic keratosis [Recovered/Resolved]
  - Hyperkeratosis [Recovered/Resolved]
